FAERS Safety Report 15694247 (Version 2)
Quarter: 2018Q4

REPORT INFORMATION
  Report Type: Spontaneous
  Country: US (occurrence: US)
  Receive Date: 20181206
  Receipt Date: 20181226
  Transmission Date: 20190205
  Serious: Yes (Life-Threatening, Other)
  Sender: FDA-Public Use
  Company Number: US-MYLANLABS-2018M1090393

PATIENT
  Age: 14 Year
  Sex: Male

DRUGS (1)
  1. EPINEPHRINE INJECTION USP AUTO-INJECTOR [Suspect]
     Active Substance: EPINEPHRINE
     Indication: ANAPHYLACTIC REACTION
     Dosage: 1 UNK
     Route: 030
     Dates: start: 20181108, end: 20181108

REACTIONS (2)
  - Needle issue [Unknown]
  - Device failure [Unknown]

NARRATIVE: CASE EVENT DATE: 20181108
